FAERS Safety Report 6783374-6 (Version None)
Quarter: 2010Q2

REPORT INFORMATION
  Report Type: 
  Country: None (occurrence: None)
  Receive Date: 20100617
  Receipt Date: 20100608
  Transmission Date: 20101027
  Serious: Yes (Hospitalization)
  Sender: FDA-Public Use
  Company Number: 8053638

PATIENT
  Sex: Female
  Weight: 75.2 kg

DRUGS (3)
  1. CERTOLIZUMAB PEGOL (CERTOLIZUMAB PEGOL) [Suspect]
     Indication: RHEUMATOID ARTHRITIS
     Dosage: (400 MG 1X/2 WEEKS, -NR OF DOSES :99 SUBCUTANEOUS)
     Route: 058
     Dates: start: 20051205, end: 20091019
  2. ENALAPRIL MALEATE [Concomitant]
  3. METHOTREXATE [Concomitant]

REACTIONS (3)
  - CELLULITIS [None]
  - FURUNCLE [None]
  - RED BLOOD CELL SEDIMENTATION RATE INCREASED [None]
